FAERS Safety Report 16888979 (Version 2)
Quarter: 2020Q1

REPORT INFORMATION
  Report Type: Spontaneous
  Country: ES (occurrence: ES)
  Receive Date: 20191007
  Receipt Date: 20200116
  Transmission Date: 20200409
  Serious: Yes (Death, Other)
  Sender: FDA-Public Use
  Company Number: ES-TEVA-2019-ES-1117256

PATIENT
  Age: 51 Year
  Sex: Female

DRUGS (2)
  1. VORICONAZOL (2878A) [Suspect]
     Active Substance: VORICONAZOLE
     Indication: BRONCHOPULMONARY ASPERGILLOSIS
     Dosage: 300 MG 12 HOURS
     Route: 042
     Dates: start: 20190716, end: 20190722
  2. CEFEPIMA (7362A) [Concomitant]
     Active Substance: CEFEPIME HYDROCHLORIDE
     Indication: RESPIRATORY TRACT INFECTION
     Dosage: 2 G 8 HOURS
     Route: 042
     Dates: start: 20190716, end: 20190722

REACTIONS (1)
  - Mixed liver injury [Recovered/Resolved]

NARRATIVE: CASE EVENT DATE: 20190721
